FAERS Safety Report 23618048 (Version 1)
Quarter: 2024Q1

REPORT INFORMATION
  Report Type: Spontaneous
  Country: US (occurrence: US)
  Receive Date: 20240311
  Receipt Date: 20240311
  Transmission Date: 20240409
  Serious: Yes (Death, Hospitalization)
  Sender: FDA-Public Use
  Company Number: US-STRIDES ARCOLAB LIMITED-2024SP002766

PATIENT
  Age: 37 Year
  Sex: Female

DRUGS (18)
  1. LEVETIRACETAM [Suspect]
     Active Substance: LEVETIRACETAM
     Indication: New onset refractory status epilepticus
     Dosage: UNK
     Route: 065
  2. PROPOFOL [Suspect]
     Active Substance: PROPOFOL
     Indication: New onset refractory status epilepticus
     Dosage: UNK
     Route: 065
  3. DEXMEDETOMIDINE [Suspect]
     Active Substance: DEXMEDETOMIDINE
     Indication: New onset refractory status epilepticus
     Dosage: UNK
     Route: 065
  4. FOSPHENYTOIN [Suspect]
     Active Substance: FOSPHENYTOIN
     Indication: New onset refractory status epilepticus
     Dosage: UNK
     Route: 065
  5. BRIVARACETAM [Suspect]
     Active Substance: BRIVARACETAM
     Indication: New onset refractory status epilepticus
     Dosage: UNK
     Route: 065
  6. CENOBAMATE [Suspect]
     Active Substance: CENOBAMATE
     Indication: New onset refractory status epilepticus
     Dosage: UNK
     Route: 065
  7. LACOSAMIDE [Suspect]
     Active Substance: LACOSAMIDE
     Indication: New onset refractory status epilepticus
     Dosage: UNK
     Route: 065
  8. LEVOCARNITINE [Suspect]
     Active Substance: LEVOCARNITINE
     Indication: New onset refractory status epilepticus
     Dosage: UNK
     Route: 065
  9. PERAMPANEL [Suspect]
     Active Substance: PERAMPANEL
     Indication: New onset refractory status epilepticus
     Dosage: UNK
     Route: 065
  10. ZONISAMIDE [Suspect]
     Active Substance: ZONISAMIDE
     Indication: New onset refractory status epilepticus
     Dosage: UNK
     Route: 065
  11. KETAMINE [Suspect]
     Active Substance: KETAMINE
     Indication: New onset refractory status epilepticus
     Dosage: UNK
     Route: 065
  12. PENTOBARBITAL [Suspect]
     Active Substance: PENTOBARBITAL
     Indication: New onset refractory status epilepticus
     Dosage: UNK
     Route: 065
  13. METHYLPREDNISOLONE [Suspect]
     Active Substance: METHYLPREDNISOLONE
     Indication: New onset refractory status epilepticus
     Dosage: UNK
     Route: 065
  14. METHYLPREDNISOLONE [Suspect]
     Active Substance: METHYLPREDNISOLONE
     Indication: Immunosuppressant drug therapy
  15. RITUXIMAB [Suspect]
     Active Substance: RITUXIMAB
     Indication: New onset refractory status epilepticus
     Dosage: UNK
     Route: 065
  16. RITUXIMAB [Suspect]
     Active Substance: RITUXIMAB
     Indication: Immunosuppressant drug therapy
  17. TOCILIZUMAB [Suspect]
     Active Substance: TOCILIZUMAB
     Indication: New onset refractory status epilepticus
     Dosage: UNK
     Route: 065
  18. TOCILIZUMAB [Suspect]
     Active Substance: TOCILIZUMAB
     Indication: Immunosuppressant drug therapy

REACTIONS (1)
  - Drug ineffective [Fatal]
